FAERS Safety Report 8083640-0 (Version None)
Quarter: 2012Q1

REPORT INFORMATION
  Report Type: 
  Country: None (occurrence: None)
  Receive Date: 20120127
  Receipt Date: 20110110
  Transmission Date: 20120608
  Serious: Yes (Hospitalization, Other)
  Sender: FDA-Public Use
  Company Number: US-ABBOTT-11P-163-0696562-00

PATIENT
  Sex: Female
  Weight: 84.898 kg

DRUGS (6)
  1. ENTOCORT EC [Concomitant]
     Indication: CROHN'S DISEASE
     Dates: end: 20101129
  2. HUMIRA [Suspect]
     Dates: start: 20110106
  3. HUMIRA [Suspect]
     Indication: CROHN'S DISEASE
     Dates: start: 20100820, end: 20101029
  4. PANTAZA [Concomitant]
     Indication: CROHN'S DISEASE
     Dates: end: 20101129
  5. PHENERGAN [Concomitant]
     Indication: NAUSEA
     Dates: end: 20101129
  6. PERCOCET [Concomitant]
     Indication: ABDOMINAL PAIN UPPER
     Dates: end: 20101129

REACTIONS (6)
  - ABDOMINAL PAIN UPPER [None]
  - NAUSEA [None]
  - GASTROINTESTINAL INFECTION [None]
  - POSTOPERATIVE WOUND INFECTION [None]
  - DIARRHOEA [None]
  - DRUG INEFFECTIVE [None]
